FAERS Safety Report 17839104 (Version 1)
Quarter: 2020Q2

REPORT INFORMATION
  Report Type: Report from Study
  Country: US (occurrence: US)
  Receive Date: 20200529
  Receipt Date: 20200529
  Transmission Date: 20200714
  Serious: No
  Sender: FDA-Public Use
  Company Number: NVSC2020US148776

PATIENT
  Sex: Female

DRUGS (1)
  1. COSENTYX [Suspect]
     Active Substance: SECUKINUMAB
     Indication: PSORIATIC ARTHROPATHY
     Dosage: UNK UNK, QW, BENEATH THE SKIN, USUALLY VIA INJECTION
     Route: 058
     Dates: start: 202004

REACTIONS (3)
  - Dyspepsia [Unknown]
  - Psoriasis [Unknown]
  - Peripheral swelling [Unknown]
